FAERS Safety Report 4839169-3 (Version None)
Quarter: 2005Q4

REPORT INFORMATION
  Report Type: 
  Country: None (occurrence: None)
  Receive Date: 20051128
  Receipt Date: 20051128
  Transmission Date: 20060501
  Serious: No
  Sender: FDA-Public Use
  Company Number: None

PATIENT

DRUGS (1)
  1. LEVAQUIN [Suspect]
     Indication: PROSTATE INFECTION
     Dosage: ONE TABLET  DAILY  PO
     Route: 048
     Dates: start: 20051105, end: 20051118

REACTIONS (6)
  - ARTHRALGIA [None]
  - BACK PAIN [None]
  - DIFFICULTY IN WALKING [None]
  - MYALGIA [None]
  - SHOULDER PAIN [None]
  - WALKING AID USER [None]
